FAERS Safety Report 8806441 (Version 1)
Quarter: 2012Q4

REPORT INFORMATION
  Report Type: Spontaneous
  Country: US (occurrence: None)
  Receive Date: 20120918
  Receipt Date: 20120918
  Transmission Date: 20130627
  Serious: No
  Sender: FDA-Public Use
  Company Number: None

PATIENT

DRUGS (3)
  1. DOBUTAMINE HYDROCHLORIDE [Suspect]
     Route: 042
  2. DOBUTAMINE HYDROCHLORIDE [Suspect]
     Route: 042
  3. DOBUTAMINE HYDROCHLORIDE [Suspect]

REACTIONS (2)
  - Product packaging issue [None]
  - Wrong drug administered [None]
